FAERS Safety Report 26084587 (Version 2)
Quarter: 2025Q4

REPORT INFORMATION
  Report Type: Spontaneous
  Country: US (occurrence: US)
  Receive Date: 20251124
  Receipt Date: 20251223
  Transmission Date: 20260117
  Serious: Yes (Other)
  Sender: BEIGENE
  Company Number: US-BEONE MEDICINES-BGN-2025-020693

PATIENT
  Age: 73 Year
  Sex: Male

DRUGS (3)
  1. BRUKINSA [Suspect]
     Active Substance: ZANUBRUTINIB
     Indication: Waldenstrom^s macroglobulinaemia
     Dosage: 320 MILLIGRAM, QD
     Route: 061
     Dates: end: 202510
  2. BRUKINSA [Suspect]
     Active Substance: ZANUBRUTINIB
     Dosage: 80 MILLIGRAM, BID
     Route: 061
     Dates: start: 202510
  3. BRUKINSA [Suspect]
     Active Substance: ZANUBRUTINIB
     Dosage: 160 MILLIGRAM, QD
     Route: 061

REACTIONS (6)
  - Oedema peripheral [Not Recovered/Not Resolved]
  - Skin abrasion [Unknown]
  - Wound [Unknown]
  - Skin discolouration [Not Recovered/Not Resolved]
  - Hypersensitivity [Unknown]
  - Weight increased [Unknown]
